FAERS Safety Report 8303836-X (Version None)
Quarter: 2012Q2

REPORT INFORMATION
  Report Type: 
  Country: None (occurrence: None)
  Receive Date: 20120423
  Receipt Date: 20120417
  Transmission Date: 20120825
  Serious: Yes (Death, Other)
  Sender: FDA-Public Use
  Company Number: PHHY2012IR031970

PATIENT
  Age: 62 Year
  Sex: Male

DRUGS (3)
  1. PREDNISOLONE [Suspect]
     Indication: RENAL TRANSPLANT
  2. MYCOPHENOLATE MOFETIL (CELLCEPT) [Suspect]
  3. SANDIMMUNE [Suspect]
     Indication: RENAL TRANSPLANT

REACTIONS (16)
  - URINARY TRACT INFECTION [None]
  - ASCITES [None]
  - PSEUDOMEMBRANOUS COLITIS [None]
  - GALLBLADDER DISORDER [None]
  - DISSEMINATED INTRAVASCULAR COAGULATION [None]
  - BACTERIAL SEPSIS [None]
  - TACHYPNOEA [None]
  - PROTHROMBIN TIME PROLONGED [None]
  - PLATELET COUNT INCREASED [None]
  - DIARRHOEA [None]
  - ANAEMIA [None]
  - ACTIVATED PARTIAL THROMBOPLASTIN TIME PROLONGED [None]
  - INTERNATIONAL NORMALISED RATIO INCREASED [None]
  - ABDOMINAL PAIN [None]
  - HYPOTHERMIA [None]
  - KIDNEY TRANSPLANT REJECTION [None]
